FAERS Safety Report 7294864-4 (Version None)
Quarter: 2011Q1

REPORT INFORMATION
  Report Type: 
  Country: None (occurrence: None)
  Receive Date: 20110211
  Receipt Date: 20110211
  Transmission Date: 20110831
  Serious: Yes (Life-Threatening, Other)
  Sender: FDA-Public Use
  Company Number: None

PATIENT
  Age: 59 Year
  Sex: Female
  Weight: 54.8852 kg

DRUGS (2)
  1. SILENOR [Suspect]
     Indication: INTERVERTEBRAL DISC PROTRUSION
     Dosage: 1-2 TABS NITETIME
     Dates: start: 20110125
  2. SILENOR [Suspect]
     Indication: ROTATOR CUFF SYNDROME
     Dosage: 1-2 TABS NITETIME
     Dates: start: 20110125

REACTIONS (9)
  - CRYING [None]
  - NIGHTMARE [None]
  - SCREAMING [None]
  - SLEEP DISORDER [None]
  - HALLUCINATION [None]
  - BLOOD GLUCOSE INCREASED [None]
  - HEART RATE INCREASED [None]
  - RESPIRATORY RATE INCREASED [None]
  - BLOOD PRESSURE INCREASED [None]
